FAERS Safety Report 5238944-3 (Version None)
Quarter: 2007Q1

REPORT INFORMATION
  Report Type: 
  Country: None (occurrence: None)
  Receive Date: 20070215
  Receipt Date: 20070212
  Transmission Date: 20070707
  Serious: Yes (Other)
  Sender: FDA-Public Use
  Company Number: CA-PFIZER INC-2007011626

PATIENT
  Sex: Female
  Weight: 63.5 kg

DRUGS (6)
  1. REACTINE [Suspect]
     Indication: HYPERSENSITIVITY
  2. WELLBUTRIN [Concomitant]
     Indication: DEPRESSION
  3. LORAZEPAM [Concomitant]
     Indication: ANXIETY
     Dosage: DAILY DOSE:.5MG
  4. PANTOPRAZOLE SODIUM [Concomitant]
     Indication: GASTROOESOPHAGEAL REFLUX DISEASE
  5. ADVAIR DISKUS 100/50 [Concomitant]
     Indication: ASTHMA
     Route: 055
  6. PAXIL [Concomitant]
     Indication: ANXIETY

REACTIONS (1)
  - CATARACT [None]
